FAERS Safety Report 24441161 (Version 1)
Quarter: 2024Q4

REPORT INFORMATION
  Report Type: Spontaneous
  Country: US (occurrence: US)
  Receive Date: 20241016
  Receipt Date: 20241016
  Transmission Date: 20250114
  Serious: Yes (Death)
  Sender: EIGER BIOPHARMACEUTICALS
  Company Number: US-EIGER BIOPHARMACEUTICALS-EIG-2024-000026

PATIENT
  Age: 28 Year
  Sex: Male

DRUGS (1)
  1. LONAFARNIB [Suspect]
     Active Substance: LONAFARNIB
     Indication: Progeria
     Dosage: UNK
     Dates: start: 2007

REACTIONS (1)
  - Cardiovascular disorder [Fatal]

NARRATIVE: CASE EVENT DATE: 20241005
